FAERS Safety Report 14842466 (Version 2)
Quarter: 2018Q2

REPORT INFORMATION
  Report Type: Spontaneous
  Country: US (occurrence: US)
  Receive Date: 20180503
  Receipt Date: 20180530
  Transmission Date: 20180711
  Serious: Yes (Other)
  Sender: FDA-Public Use
  Company Number: US-BAYER-2018-079803

PATIENT
  Sex: Female

DRUGS (1)
  1. MIRENA [Suspect]
     Active Substance: LEVONORGESTREL
     Indication: UTERINE LEIOMYOMA
     Dosage: 20 MCG/24HR, CONT
     Route: 015
     Dates: start: 201708

REACTIONS (8)
  - Off label use of device [None]
  - Cyst [Not Recovered/Not Resolved]
  - Amenorrhoea [Not Recovered/Not Resolved]
  - Product use in unapproved indication [None]
  - Device dislocation [Not Recovered/Not Resolved]
  - Abdominal pain lower [Not Recovered/Not Resolved]
  - Headache [Not Recovered/Not Resolved]
  - Pain [Not Recovered/Not Resolved]

NARRATIVE: CASE EVENT DATE: 201801
